FAERS Safety Report 11349353 (Version 4)
Quarter: 2016Q2

REPORT INFORMATION
  Report Type: Report from Study
  Country: BR (occurrence: BR)
  Receive Date: 20150807
  Receipt Date: 20160422
  Transmission Date: 20160815
  Serious: Yes (Hospitalization, Other)
  Sender: FDA-Public Use
  Company Number: BR-ABBVIE-15K-020-1438657-00

PATIENT
  Age: 26 Year
  Sex: Female
  Weight: 85 kg

DRUGS (7)
  1. HUMIRA [Suspect]
     Active Substance: ADALIMUMAB
     Route: 058
     Dates: start: 2015, end: 201602
  2. IMOSEC [Concomitant]
     Active Substance: LOPERAMIDE
     Indication: DIARRHOEA
     Route: 048
  3. ESCITALOPRAM [Concomitant]
     Active Substance: ESCITALOPRAM OXALATE
     Indication: ANXIETY
  4. HUMIRA [Suspect]
     Active Substance: ADALIMUMAB
     Indication: CROHN^S DISEASE
     Dosage: LOADING DOSE, WEEK 0
     Route: 058
     Dates: start: 20150109, end: 20150109
  5. ESCITALOPRAM [Concomitant]
     Active Substance: ESCITALOPRAM OXALATE
     Indication: ANTIDEPRESSANT THERAPY
     Route: 048
     Dates: start: 201504
  6. HUMIRA [Suspect]
     Active Substance: ADALIMUMAB
     Dosage: LOADING DOSE, WEEK 2
     Route: 058
     Dates: start: 201501, end: 201501
  7. AZATHIOPRINE. [Concomitant]
     Active Substance: AZATHIOPRINE
     Indication: CROHN^S DISEASE
     Route: 048
     Dates: start: 2014

REACTIONS (23)
  - Decreased appetite [Unknown]
  - Intestinal fistula [Not Recovered/Not Resolved]
  - Amenorrhoea [Not Recovered/Not Resolved]
  - Intestinal obstruction [Unknown]
  - Post procedural inflammation [Unknown]
  - Procedural pain [Unknown]
  - Limb injury [Unknown]
  - Exercise lack of [Unknown]
  - Abscess intestinal [Recovered/Resolved]
  - Depressed mood [Unknown]
  - Gastrointestinal inflammation [Unknown]
  - Malaise [Recovered/Resolved]
  - Drug ineffective [Unknown]
  - Gastrointestinal stoma complication [Unknown]
  - Anxiety [Unknown]
  - Fibromyalgia [Unknown]
  - Pain in extremity [Not Recovered/Not Resolved]
  - Diarrhoea [Not Recovered/Not Resolved]
  - Colostomy closure [Unknown]
  - Diarrhoea [Recovered/Resolved]
  - Intestinal stenosis [Recovered/Resolved]
  - Intestinal dilatation [Unknown]
  - Weight increased [Unknown]

NARRATIVE: CASE EVENT DATE: 2015
